FAERS Safety Report 15452700 (Version 1)
Quarter: 2018Q4

REPORT INFORMATION
  Report Type: Spontaneous
  Country: US (occurrence: US)
  Receive Date: 20181001
  Receipt Date: 20181001
  Transmission Date: 20190204
  Serious: Yes (Hospitalization, Other)
  Sender: FDA-Public Use
  Company Number: US-BRISTOL-MYERS SQUIBB COMPANY-BMS-2018-086856

PATIENT
  Sex: Female

DRUGS (1)
  1. COUMADIN [Suspect]
     Active Substance: WARFARIN SODIUM
     Indication: ATRIAL FIBRILLATION
     Dosage: UNAVAILABLE
     Route: 065

REACTIONS (5)
  - Adverse event [Unknown]
  - Diabetes mellitus [Unknown]
  - Plasma cell myeloma [Unknown]
  - Chronic obstructive pulmonary disease [Unknown]
  - Malaise [Unknown]
